FAERS Safety Report 5677059-7 (Version None)
Quarter: 2008Q1

REPORT INFORMATION
  Report Type: 
  Country: None (occurrence: None)
  Receive Date: 20080318
  Receipt Date: 20080306
  Transmission Date: 20080703
  Serious: Yes (Death)
  Sender: FDA-Public Use
  Company Number: OPER20080043

PATIENT
  Age: 33 Year
  Sex: Male

DRUGS (9)
  1. OPANA ER [Suspect]
     Indication: PAIN
     Dosage: 20 MG, 1 TABLET BID, PER ORAL
     Route: 048
     Dates: start: 20071101, end: 20080101
  2. CLONAZEPAM [Suspect]
     Indication: ANXIETY
     Dosage: 1 MG, 1 TABLET TID, PER ORAL
     Route: 048
     Dates: end: 20080101
  3. MICARDIS [Suspect]
     Indication: HYPERTENSION
     Dosage: 80 MG, 1 TABLET DAILY, PER ORAL
     Route: 048
     Dates: end: 20080101
  4. BACLOFEN [Suspect]
     Dosage: 20 MG, 2 TABLETS BID, PER ORAL
     Route: 048
     Dates: end: 20080101
  5. CYCLOBENZAPRINE HCL [Suspect]
     Dosage: 10 MG, 1 TABLET TID, PER ORAL
     Route: 048
     Dates: end: 20080101
  6. ROZEREM [Suspect]
     Indication: INSOMNIA
     Dates: end: 20080101
  7. AMITRIPTYLINE HCL [Suspect]
     Indication: DEPRESSION
     Dosage: 50 MG, 2 TABLETS QHS, PER ORAL
     Route: 048
     Dates: end: 20080101
  8. WELLBUTRIN XL [Suspect]
     Indication: DEPRESSION
     Dosage: 300 MG, DAILY, PER ORAL
     Route: 048
     Dates: end: 20080101
  9. OXYCODONE HCL [Suspect]
     Indication: PAIN
     Dosage: 5 MG, 1-2 TABLETS BID PRN, PER ORAL
     Route: 048
     Dates: end: 20080101

REACTIONS (2)
  - ACCIDENTAL DEATH [None]
  - DRUG TOXICITY [None]
